FAERS Safety Report 8585770-3 (Version None)
Quarter: 2012Q3

REPORT INFORMATION
  Report Type: 
  Country: None (occurrence: None)
  Receive Date: 20120802
  Receipt Date: 20120802
  Transmission Date: 20120928
  Serious: Yes (Other)
  Sender: FDA-Public Use
  Company Number: None

PATIENT
  Sex: Female

DRUGS (1)
  1. CLINDAMYCIN [Suspect]
     Indication: STAPHYLOCOCCAL INFECTION
     Dosage: 300 MG THREE A DAY PO
     Route: 048
     Dates: start: 20120722, end: 20120731

REACTIONS (3)
  - ORAL PAIN [None]
  - PAIN [None]
  - PAIN IN EXTREMITY [None]
